FAERS Safety Report 15244775 (Version 1)
Quarter: 2018Q3

REPORT INFORMATION
  Report Type: Spontaneous
  Country: JP (occurrence: JP)
  Receive Date: 20180806
  Receipt Date: 20180806
  Transmission Date: 20181010
  Serious: Yes (Other)
  Sender: FDA-Public Use
  Company Number: JP-SHIRE-JP201829718

PATIENT

DRUGS (1)
  1. LIALDA [Suspect]
     Active Substance: MESALAMINE
     Indication: PRODUCT USED FOR UNKNOWN INDICATION
     Dosage: 4800 MG, 1X/DAY:QD
     Route: 048
     Dates: end: 20180726

REACTIONS (5)
  - Nausea [Unknown]
  - Abdominal pain [Unknown]
  - Pyrexia [Unknown]
  - Diarrhoea [Unknown]
  - Haematochezia [Unknown]
